FAERS Safety Report 6154671-2 (Version None)
Quarter: 2009Q2

REPORT INFORMATION
  Report Type: 
  Country: None (occurrence: None)
  Receive Date: 20090414
  Receipt Date: 20090407
  Transmission Date: 20091009
  Serious: Yes (Hospitalization)
  Sender: FDA-Public Use
  Company Number: JP-GILEAD-E2B_00000287

PATIENT
  Sex: Male

DRUGS (5)
  1. HEPSERA [Suspect]
     Indication: HEPATITIS B
     Dosage: 10MG PER DAY
     Route: 048
     Dates: start: 20090116, end: 20090206
  2. ENTECAVIR [Concomitant]
     Indication: HEPATITIS B
     Dosage: 1MG PER DAY
     Route: 048
     Dates: start: 20081201
  3. URSO 250 [Concomitant]
     Dosage: 30MG PER DAY
     Route: 048
     Dates: start: 20081226
  4. TAURINE [Concomitant]
     Dosage: 3G PER DAY
     Route: 048
     Dates: start: 20081201
  5. GASTER [Concomitant]
     Dosage: 40MG PER DAY
     Route: 048
     Dates: start: 20081228

REACTIONS (3)
  - DERMATITIS [None]
  - PYREXIA [None]
  - RASH [None]
